FAERS Safety Report 12153752 (Version 1)
Quarter: 2016Q1

REPORT INFORMATION
  Report Type: Spontaneous
  Country: FR (occurrence: FR)
  Receive Date: 20160307
  Receipt Date: 20160307
  Transmission Date: 20160526
  Serious: Yes (Hospitalization)
  Sender: FDA-Public Use
  Company Number: FR-ROCHE-1721015

PATIENT
  Age: 45 Year
  Sex: Male

DRUGS (19)
  1. KARDEGIC [Concomitant]
     Active Substance: ASPIRIN LYSINE
     Dosage: MIDDAY
     Route: 065
  2. DOLIPRANE [Concomitant]
     Active Substance: ACETAMINOPHEN
  3. INEXIUM [Concomitant]
     Active Substance: ESOMEPRAZOLE
     Dosage: 2 TABLETS MORNING
     Route: 065
  4. CALCIDOSE (FRANCE) [Concomitant]
     Active Substance: CALCIUM CARBONATE
     Dosage: 500 MG MORNING
     Route: 065
  5. COTRIATEC [Concomitant]
     Active Substance: HYDROCHLOROTHIAZIDE\RAMIPRIL
     Dosage: 1 TABLET MORNING
     Route: 065
  6. CERTICAN [Suspect]
     Active Substance: EVEROLIMUS
     Indication: HEART TRANSPLANT
     Route: 048
     Dates: start: 20151103
  7. CORTANCYL [Suspect]
     Active Substance: PREDNISONE
     Indication: HEART TRANSPLANT
     Route: 048
     Dates: start: 20140517
  8. RAMIPRIL. [Concomitant]
     Active Substance: RAMIPRIL
     Dosage: 5 MG MORNING
     Route: 065
  9. LERCAN [Concomitant]
     Active Substance: LERCANIDIPINE
     Dosage: 20 MG 1 TABLET EVENING
     Route: 065
  10. SPASFON (FRANCE) [Concomitant]
     Active Substance: PHLOROGLUCINOL
     Dosage: 2 TABLETS MORNING MIDDAY AND EVENING
     Route: 065
  11. CERTICAN [Suspect]
     Active Substance: EVEROLIMUS
     Route: 048
  12. LEXOMIL [Concomitant]
     Active Substance: BROMAZEPAM
     Dosage: HALF DF EVENING AT BEDTIME
     Route: 065
  13. CELLCEPT [Suspect]
     Active Substance: MYCOPHENOLATE MOFETIL\MYCOPHENOLATE MOFETIL HYDROCHLORIDE
     Indication: HEART TRANSPLANT
     Route: 048
     Dates: start: 20140615
  14. NEORAL [Suspect]
     Active Substance: CYCLOSPORINE
     Indication: HEART TRANSPLANT
     Route: 048
     Dates: start: 20140515
  15. UVEDOSE [Concomitant]
     Active Substance: CHOLECALCIFEROL
     Dosage: 1 ORAL AMPOULE EVERY 3 MONTHS
     Route: 048
  16. CELLCEPT [Suspect]
     Active Substance: MYCOPHENOLATE MOFETIL\MYCOPHENOLATE MOFETIL HYDROCHLORIDE
     Route: 048
  17. PRAVASTATIN [Concomitant]
     Active Substance: PRAVASTATIN\PRAVASTATIN SODIUM
     Dosage: 20 MG EVENING
     Route: 065
  18. ROVALCYTE [Concomitant]
     Active Substance: VALGANCICLOVIR HYDROCHLORIDE
     Dosage: 450 MG 1 TABLET MORNING
     Route: 065
  19. GRANOCYTE [Concomitant]
     Active Substance: LENOGRASTIM
     Dosage: 1 INJECTION OF 34 MILLIONS OF UNIT ONCE/WEEK PERFORMED ONLY IN DAY HOSPITAL IF BAND NEUTROPHIL COUNT
     Route: 065

REACTIONS (2)
  - Enteritis [Recovered/Resolved]
  - Epstein-Barr virus infection [Recovered/Resolved]

NARRATIVE: CASE EVENT DATE: 20151205
